FAERS Safety Report 9231614 (Version 1)
Quarter: 2013Q2

REPORT INFORMATION
  Report Type: Report from Study
  Country: IL (occurrence: IL)
  Receive Date: 20130415
  Receipt Date: 20130415
  Transmission Date: 20140414
  Serious: Yes (Hospitalization)
  Sender: FDA-Public Use
  Company Number: IL-ROXANE LABORATORIES, INC.-2008-DE-07786GD

PATIENT
  Age: 49 Year
  Sex: Male

DRUGS (12)
  1. MORPHINE [Suspect]
     Indication: PHANTOM PAIN
     Dosage: 300 MG
  2. MORPHINE [Suspect]
     Dosage: 120 MG
  3. MORPHINE [Suspect]
     Route: 042
  4. MORPHINE [Suspect]
     Dosage: 90 MG
  5. MORPHINE [Suspect]
     Dosage: 120 MG
  6. OXYCONTIN [Suspect]
     Indication: PHANTOM PAIN
     Dosage: 80 MG
  7. OXYCONTIN [Suspect]
     Dosage: 120 MG
  8. OXYCONTIN [Suspect]
     Dosage: 160 MG
  9. CLONAZEPAM [Suspect]
     Indication: PHANTOM PAIN
     Dosage: 1 MG
     Route: 048
  10. KETAMIN [Concomitant]
     Indication: PHANTOM PAIN
     Dosage: 25 MG
     Route: 042
  11. OXYCODON [Concomitant]
     Indication: PHANTOM PAIN
     Dosage: 40 MG
  12. MEPERIDINE [Concomitant]
     Indication: PAIN
     Dosage: 100 MG
     Route: 030

REACTIONS (1)
  - Drug ineffective [Unknown]
